FAERS Safety Report 16773546 (Version 1)
Quarter: 2019Q3

REPORT INFORMATION
  Report Type: Spontaneous
  Country: US (occurrence: US)
  Receive Date: 20190904
  Receipt Date: 20190904
  Transmission Date: 20191005
  Serious: Yes (Hospitalization)
  Sender: FDA-Public Use
  Company Number: US-SHIRE-US201928624

PATIENT
  Age: 52 Year
  Sex: Male

DRUGS (1)
  1. GATTEX [Suspect]
     Active Substance: TEDUGLUTIDE\WATER
     Indication: PRODUCT USED FOR UNKNOWN INDICATION
     Dosage: 0.265 UNK
     Route: 058
     Dates: start: 20190624

REACTIONS (3)
  - Hospitalisation [Recovering/Resolving]
  - Bowel movement irregularity [Unknown]
  - Faeces hard [Unknown]

NARRATIVE: CASE EVENT DATE: 20190819
